FAERS Safety Report 9084227 (Version 1)
Quarter: 2013Q1

REPORT INFORMATION
  Report Type: Spontaneous
  Country: FR (occurrence: FR)
  Receive Date: 20130130
  Receipt Date: 20130130
  Transmission Date: 20140127
  Serious: Yes (Other)
  Sender: FDA-Public Use
  Company Number: FR-009507513-1301FRA010561

PATIENT
  Age: 11 Year
  Sex: Male

DRUGS (1)
  1. STROMECTOL [Suspect]
     Indication: ACARODERMATITIS
     Dosage: UNK
     Route: 048
     Dates: start: 20130109, end: 20130109

REACTIONS (4)
  - Malaise [Unknown]
  - Loss of consciousness [Unknown]
  - Rash [Unknown]
  - Pruritus [Unknown]
